FAERS Safety Report 5576286-7 (Version None)
Quarter: 2007Q4

REPORT INFORMATION
  Report Type: 
  Country: None (occurrence: None)
  Receive Date: 20071130
  Receipt Date: 20070920
  Transmission Date: 20080405
  Serious: No
  Sender: FDA-Public Use
  Company Number: US200709004541

PATIENT
  Age: 56 Year
  Sex: Female
  Weight: 104.3 kg

DRUGS (19)
  1. BYETTA [Suspect]
     Indication: DIABETES MELLITUS
     Dosage: 10 UG, 2/D, SUBCUTANEOUS
     Route: 058
     Dates: start: 20060101
  2. EXENATIDE 5MCG PEN, DISPOSABLE DEVICE (EXENATIDE PEN (5MCG)) PEN,DISPO [Concomitant]
  3. EXENATIDE 5MCG PEN, DISPOSABLE DEVICE (EXENATIDE PEN (5MCG)) PEN,DISPO [Concomitant]
  4. HUMULIN 30/70 (INSULIN HUMAN INJECTION, ISOPHANE) [Concomitant]
  5. HUMALOG [Concomitant]
  6. RESTASIS (CICLOSPORIN) [Concomitant]
  7. MIRAPEX [Concomitant]
  8. NEURONTIN [Concomitant]
  9. PROBENECID [Concomitant]
  10. KLONOPIN [Concomitant]
  11. CYMBALTA [Concomitant]
  12. ALBUTEROL [Concomitant]
  13. COLCHICUM JTL LIQ [Concomitant]
  14. NAPROSYN /USA/ (NAPROXEN) [Concomitant]
  15. PEPCID [Concomitant]
  16. TORSEMIDE [Concomitant]
  17. SEROQUEL [Concomitant]
  18. SPIRONOLACTONE W/HYDROCHLOROTHIAZIDE (HYDROCHLOROTHIAZIDE, SPIRONOLACT [Concomitant]
  19. MEPERGAN FORTIS (PETHIDINE HYDROCHLORIDE, PROMETHAZINE HYDROCHLORIDE) [Concomitant]

REACTIONS (2)
  - DRY EYE [None]
  - VISUAL DISTURBANCE [None]
